FAERS Safety Report 13100699 (Version 6)
Quarter: 2017Q4

REPORT INFORMATION
  Report Type: Report from Study
  Country: JP (occurrence: JP)
  Receive Date: 20170110
  Receipt Date: 20171128
  Transmission Date: 20180320
  Serious: Yes (Other)
  Sender: FDA-Public Use
  Company Number: PHJP2016JP007960

PATIENT
  Age: 72 Year
  Sex: Female

DRUGS (17)
  1. FARYDAK [Suspect]
     Active Substance: PANOBINOSTAT
     Indication: PLASMA CELL MYELOMA
     Dosage: 20 MG, QD, (6 DOSES PER CYCLE)
     Route: 048
     Dates: start: 20160322, end: 20160401
  2. FARYDAK [Suspect]
     Active Substance: PANOBINOSTAT
     Dosage: 15 MG, QD, (6 DOSES PER CYCLE)
     Route: 048
     Dates: start: 20160524, end: 20160604
  3. VELCADE [Suspect]
     Active Substance: BORTEZOMIB
     Dosage: 1.3 MG/M2, QW2
     Route: 058
     Dates: start: 20160524, end: 20160604
  4. VELCADE [Suspect]
     Active Substance: BORTEZOMIB
     Dosage: 1.3 MG/M2, QW2
     Route: 058
     Dates: start: 20160614, end: 20160625
  5. VELCADE [Suspect]
     Active Substance: BORTEZOMIB
     Dosage: 1.3 MG/M2, QW2
     Route: 058
     Dates: start: 20160712, end: 20160723
  6. DEXAMETHAZONE [Suspect]
     Active Substance: DEXAMETHASONE
     Dosage: UNK
     Route: 065
     Dates: start: 20160412, end: 20160423
  7. LYRICA [Concomitant]
     Active Substance: PREGABALIN
     Indication: NEUROPATHY PERIPHERAL
     Dosage: 150 MG, QD
     Route: 048
  8. VELCADE [Suspect]
     Active Substance: BORTEZOMIB
     Indication: PLASMA CELL MYELOMA
     Dosage: 1.3 MG/M2, QW2
     Route: 058
     Dates: start: 20160322, end: 20160401
  9. DEXAMETHAZONE [Suspect]
     Active Substance: DEXAMETHASONE
     Dosage: UNK
     Route: 065
     Dates: start: 20160524, end: 20160604
  10. FARYDAK [Suspect]
     Active Substance: PANOBINOSTAT
     Dosage: 15 MG, QD, (6 DOSES PER CYCLE)
     Route: 048
     Dates: start: 20160614, end: 20160625
  11. FARYDAK [Suspect]
     Active Substance: PANOBINOSTAT
     Dosage: 15 MG, QD, (6 DOSES PER CYCLE)
     Route: 048
     Dates: start: 20160712, end: 20160723
  12. VELCADE [Suspect]
     Active Substance: BORTEZOMIB
     Dosage: 1.3 MG/M2, QW2
     Route: 058
     Dates: start: 20160412, end: 20160423
  13. FARYDAK [Suspect]
     Active Substance: PANOBINOSTAT
     Dosage: 15 MG, QD, (6 DOSES PER CYCLE)
     Route: 048
     Dates: start: 20160412, end: 20160423
  14. DEXAMETHAZONE [Suspect]
     Active Substance: DEXAMETHASONE
     Indication: PLASMA CELL MYELOMA
     Dosage: UNK
     Route: 065
     Dates: start: 20160322, end: 20160401
  15. DEXAMETHAZONE [Suspect]
     Active Substance: DEXAMETHASONE
     Dosage: UNK
     Route: 065
     Dates: start: 20160614, end: 20160625
  16. DEXAMETHAZONE [Suspect]
     Active Substance: DEXAMETHASONE
     Dosage: UNK
     Route: 065
     Dates: start: 20160712, end: 20160723
  17. DEXAMETHAZONE [Suspect]
     Active Substance: DEXAMETHASONE
     Dosage: UNK
     Route: 065

REACTIONS (6)
  - Platelet count decreased [Recovered/Resolved]
  - Alanine aminotransferase increased [Recovering/Resolving]
  - Haemoglobin decreased [Unknown]
  - Neuropathy peripheral [Recovering/Resolving]
  - Liver disorder [Recovering/Resolving]
  - White blood cell count decreased [Unknown]

NARRATIVE: CASE EVENT DATE: 20160401
